FAERS Safety Report 8326551-5 (Version None)
Quarter: 2012Q2

REPORT INFORMATION
  Report Type: 
  Country: None (occurrence: None)
  Receive Date: 20120501
  Receipt Date: 20120201
  Transmission Date: 20120825
  Serious: No
  Sender: FDA-Public Use
  Company Number: US-MUTUAL PHARMACEUTICAL COMPANY, INC.-SLDC20120001

PATIENT
  Sex: Male
  Weight: 86.26 kg

DRUGS (1)
  1. SULINDAC [Suspect]
     Indication: BACK PAIN
     Route: 048
     Dates: start: 20111101, end: 20120101

REACTIONS (5)
  - OESOPHAGEAL DISCOMFORT [None]
  - MUSCLE SWELLING [None]
  - PROCTALGIA [None]
  - GASTROOESOPHAGEAL REFLUX DISEASE [None]
  - ABDOMINAL RIGIDITY [None]
